FAERS Safety Report 7260352-4 (Version None)
Quarter: 2011Q1

REPORT INFORMATION
  Report Type: 
  Country: None (occurrence: None)
  Receive Date: 20110130
  Receipt Date: 20101008
  Transmission Date: 20110831
  Serious: No
  Sender: FDA-Public Use
  Company Number: US-ABBOTT-10P-163-0677061-00

PATIENT
  Sex: Male
  Weight: 113.5 kg

DRUGS (4)
  1. LIQUITEARS [Concomitant]
     Indication: DRY EYE
  2. UNKNOWN BLOOD PRESSURE MEDICATION [Concomitant]
     Indication: HYPERTENSION
  3. HUMIRA [Suspect]
     Indication: WRONG DRUG ADMINISTERED
     Dates: start: 20100901, end: 20100901
  4. UNKNOWN DIABETIC MEDICATIONS [Concomitant]
     Indication: DIABETES MELLITUS

REACTIONS (2)
  - DEVICE MALFUNCTION [None]
  - ACCIDENTAL EXPOSURE [None]
